FAERS Safety Report 5966549-5 (Version None)
Quarter: 2008Q4

REPORT INFORMATION
  Report Type: 
  Country: None (occurrence: None)
  Receive Date: 20081125
  Receipt Date: 20081118
  Transmission Date: 20090506
  Serious: Yes (Other)
  Sender: FDA-Public Use
  Company Number: DE-WYE-G02593008

PATIENT

DRUGS (1)
  1. REFACTO [Suspect]
     Indication: FACTOR VIII DEFICIENCY
     Dosage: HIGH DOSES (DOSE UNKNOWN)
     Route: 042

REACTIONS (1)
  - COAGULATION FACTOR VIII LEVEL DECREASED [None]
